FAERS Safety Report 7252562-7 (Version None)
Quarter: 2011Q1

REPORT INFORMATION
  Report Type: 
  Country: None (occurrence: None)
  Receive Date: 20110129
  Receipt Date: 20100104
  Transmission Date: 20110831
  Serious: No
  Sender: FDA-Public Use
  Company Number: US-ABBOTT-10P-163-0617379-00

PATIENT
  Sex: Female

DRUGS (2)
  1. HUMIRA [Suspect]
     Dosage: SYRINGE
  2. HUMIRA [Suspect]
     Indication: RHEUMATOID ARTHRITIS
     Dates: start: 20090905

REACTIONS (4)
  - INJECTION SITE PRURITUS [None]
  - INJECTION SITE REACTION [None]
  - TOOTHACHE [None]
  - INJECTION SITE RASH [None]
